FAERS Safety Report 21798071 (Version 1)
Quarter: 2022Q4

REPORT INFORMATION
  Report Type: Spontaneous
  Country: FR (occurrence: None)
  Receive Date: 20221230
  Receipt Date: 20221230
  Transmission Date: 20230112
  Serious: Yes (Hospitalization)
  Sender: FDA-Public Use
  Company Number: 2022A415462

PATIENT
  Age: 77 Year
  Sex: Male
  Weight: 65 kg

DRUGS (6)
  1. QUETIAPINE [Suspect]
     Active Substance: QUETIAPINE
     Indication: Mixed anxiety and depressive disorder
     Dosage: ONCE A DAY
     Route: 048
     Dates: start: 20220607, end: 20220630
  2. ABILIFY [Suspect]
     Active Substance: ARIPIPRAZOLE
     Indication: Mixed anxiety and depressive disorder
     Dosage: ONCE A DAY
     Route: 048
     Dates: start: 20220425, end: 20220607
  3. MIRTAZAPINE [Suspect]
     Active Substance: MIRTAZAPINE
     Indication: Mixed anxiety and depressive disorder
     Route: 048
     Dates: start: 20210920, end: 20220701
  4. CYMBALTA [Suspect]
     Active Substance: DULOXETINE HYDROCHLORIDE
     Indication: Mixed anxiety and depressive disorder
     Dosage: ONCE A DAY
     Route: 048
     Dates: start: 20210920, end: 20220701
  5. PIRACETAM [Suspect]
     Active Substance: PIRACETAM
     Indication: Mixed anxiety and depressive disorder
     Dosage: ONCE A DAY
     Route: 048
     Dates: start: 20210920, end: 20220425
  6. XANAX [Suspect]
     Active Substance: ALPRAZOLAM
     Indication: Mixed anxiety and depressive disorder
     Dosage: ONCE A DAY
     Route: 048
     Dates: start: 20210920, end: 20220425

REACTIONS (2)
  - Encephalopathy [Not Recovered/Not Resolved]
  - Parkinsonism [Not Recovered/Not Resolved]

NARRATIVE: CASE EVENT DATE: 20220425
